FAERS Safety Report 10174666 (Version 1)
Quarter: 2014Q2

REPORT INFORMATION
  Report Type: Spontaneous
  Country: US (occurrence: None)
  Receive Date: 20140514
  Receipt Date: 20140514
  Transmission Date: 20141212
  Serious: Yes (Disabling)
  Sender: FDA-Public Use
  Company Number: None

PATIENT
  Age: 35 Year
  Sex: Female
  Weight: 102.06 kg

DRUGS (1)
  1. LEVAQUIN [Suspect]
     Indication: COLONIC FISTULA
     Route: 048
     Dates: start: 20131021, end: 20131114

REACTIONS (8)
  - Tendon disorder [None]
  - Rotator cuff syndrome [None]
  - Arthralgia [None]
  - Musculoskeletal pain [None]
  - Arthralgia [None]
  - Arthralgia [None]
  - Arthralgia [None]
  - Arthralgia [None]
